FAERS Safety Report 15750351 (Version 1)
Quarter: 2018Q4

REPORT INFORMATION
  Report Type: Spontaneous
  Country: US (occurrence: US)
  Receive Date: 20181206
  Receipt Date: 20181206
  Transmission Date: 20190205
  Serious: Yes (Life-Threatening, Disabling)
  Sender: FDA-Public Use
  Company Number: None

PATIENT
  Age: 48 Year
  Sex: Male
  Weight: 85.05 kg

DRUGS (1)
  1. INVEGA SUSTENNA [Suspect]
     Active Substance: PALIPERIDONE PALMITATE
     Indication: SCHIZOAFFECTIVE DISORDER
     Dosage: ?          QUANTITY:1 INJECTION(S);OTHER FREQUENCY:1 EVERY 28 DAYS;OTHER ROUTE:INJECTION BUTTOCKS?
     Dates: start: 20180315, end: 20181128

REACTIONS (2)
  - Pulmonary oedema [None]
  - Seizure [None]

NARRATIVE: CASE EVENT DATE: 20181205
